FAERS Safety Report 6895948-2 (Version None)
Quarter: 2010Q3

REPORT INFORMATION
  Report Type: 
  Country: None (occurrence: None)
  Receive Date: 20100802
  Receipt Date: 20100721
  Transmission Date: 20110219
  Serious: Yes (Life-Threatening, Hospitalization)
  Sender: FDA-Public Use
  Company Number: CH-CEPHALON-2010004020

PATIENT
  Sex: Female

DRUGS (14)
  1. TREANDA [Suspect]
     Indication: NON-HODGKIN'S LYMPHOMA
     Route: 042
     Dates: start: 20100119, end: 20100120
  2. MABTHERA [Suspect]
     Indication: NON-HODGKIN'S LYMPHOMA
     Route: 042
     Dates: start: 20100119, end: 20100119
  3. EMEND [Suspect]
     Indication: NAUSEA
     Route: 048
     Dates: start: 20100119, end: 20100121
  4. EMEND [Suspect]
     Indication: VOMITING
  5. PONSTAN [Suspect]
     Indication: PAIN IN EXTREMITY
     Route: 048
     Dates: start: 20100101, end: 20100201
  6. PASPERTIN [Suspect]
     Indication: NAUSEA
     Route: 048
     Dates: start: 20100101, end: 20100201
  7. PASPERTIN [Suspect]
     Indication: VOMITING
  8. NAVOBAN [Concomitant]
  9. FORTECORTIN [Concomitant]
  10. XANAX [Concomitant]
  11. CIPRALEX [Concomitant]
  12. PANTOZAL [Concomitant]
  13. ZOLPIDEM [Concomitant]
  14. ACETAMINOPHEN [Concomitant]

REACTIONS (2)
  - AGRANULOCYTOSIS [None]
  - PYREXIA [None]
